FAERS Safety Report 8604475-3 (Version None)
Quarter: 2012Q3

REPORT INFORMATION
  Report Type: 
  Country: None (occurrence: None)
  Receive Date: 20120806
  Receipt Date: 20120806
  Transmission Date: 20120928
  Serious: Yes (Disabling)
  Sender: FDA-Public Use
  Company Number: None

PATIENT
  Sex: Male
  Weight: 83.6 kg

DRUGS (1)
  1. ZOMETA [Suspect]
     Indication: BREAST CANCER
     Dosage: ?? MONTHLY INTRAVENOUS, MTHLY X 6, THEN 2MTHS X 4
     Route: 042

REACTIONS (1)
  - OSTEONECROSIS OF JAW [None]
